FAERS Safety Report 5590523-4 (Version None)
Quarter: 2008Q1

REPORT INFORMATION
  Report Type: 
  Country: None (occurrence: None)
  Receive Date: 20080114
  Receipt Date: 20080107
  Transmission Date: 20080703
  Serious: Yes (Hospitalization, Other)
  Sender: FDA-Public Use
  Company Number: US-BOEHRINGER INGELHEIM PHARMACEUTICALS, INC.-2008-BP-00425PF

PATIENT
  Sex: Male
  Weight: 122 kg

DRUGS (10)
  1. SPIRIVA [Suspect]
  2. LIPITOR [Suspect]
     Indication: BLOOD CHOLESTEROL INCREASED
  3. OXYGEN [Concomitant]
  4. AVANDIA [Concomitant]
  5. COREG [Concomitant]
  6. FUROSEMIDE [Concomitant]
  7. SPIRONOLACTONE [Concomitant]
  8. TRICOR [Concomitant]
  9. VITAMIN D [Concomitant]
  10. GLIPIZIDE [Concomitant]

REACTIONS (8)
  - BLOOD GLUCOSE INCREASED [None]
  - CONSTIPATION [None]
  - DYSPNOEA [None]
  - DYSURIA [None]
  - MOVEMENT DISORDER [None]
  - MYALGIA [None]
  - READING DISORDER [None]
  - TREMOR [None]
